FAERS Safety Report 6118945-3 (Version None)
Quarter: 2009Q1

REPORT INFORMATION
  Report Type: 
  Country: None (occurrence: None)
  Receive Date: 20090316
  Receipt Date: 20090211
  Transmission Date: 20090719
  Serious: No
  Sender: FDA-Public Use
  Company Number: US-BAYER-200912702NA

PATIENT
  Sex: Male

DRUGS (2)
  1. GENERIC CIPROFLOXACIN HYDROCHLORIDE [Suspect]
     Indication: DRUG USE FOR UNKNOWN INDICATION
  2. BLOOD PRESSURE MEDICATION [Concomitant]

REACTIONS (1)
  - CONTUSION [None]
